FAERS Safety Report 6103126-X (Version None)
Quarter: 2009Q1

REPORT INFORMATION
  Report Type: 
  Country: None (occurrence: None)
  Receive Date: 20090302
  Receipt Date: 20090217
  Transmission Date: 20090719
  Serious: Yes (Other)
  Sender: FDA-Public Use
  Company Number: 041524

PATIENT
  Age: 21 Year
  Sex: Female

DRUGS (2)
  1. CLARAVIS       (ISOTRETINOIN) [Suspect]
     Dosage: 40 MG,QD, ORAL
     Route: 048
     Dates: start: 20090121, end: 20090216
  2. YASMIN [Concomitant]

REACTIONS (4)
  - ALCOHOL USE [None]
  - DRUG EXPOSURE DURING PREGNANCY [None]
  - TREATMENT NONCOMPLIANCE [None]
  - UNINTENDED PREGNANCY [None]
